FAERS Safety Report 8158251-9 (Version None)
Quarter: 2012Q1

REPORT INFORMATION
  Report Type: 
  Country: None (occurrence: None)
  Receive Date: 20120223
  Receipt Date: 20120209
  Transmission Date: 20120608
  Serious: Yes (Hospitalization)
  Sender: FDA-Public Use
  Company Number: FR-BIOGENIDEC-2012BI002655

PATIENT
  Age: 33 Year
  Sex: Male

DRUGS (1)
  1. TYSABRI [Suspect]
     Indication: MULTIPLE SCLEROSIS
     Route: 042
     Dates: start: 20100415, end: 20111220

REACTIONS (3)
  - WEIGHT DECREASED [None]
  - ABNORMAL BEHAVIOUR [None]
  - PROGRESSIVE MULTIFOCAL LEUKOENCEPHALOPATHY [None]
